FAERS Safety Report 11808816 (Version 1)
Quarter: 2015Q4

REPORT INFORMATION
  Report Type: Spontaneous
  Country: US (occurrence: US)
  Receive Date: 20151207
  Receipt Date: 20151207
  Transmission Date: 20160305
  Serious: No
  Sender: FDA-Public Use
  Company Number: US-ROCHE-1618353

PATIENT
  Age: 80 Year
  Sex: Female

DRUGS (2)
  1. ACTEMRA [Suspect]
     Active Substance: TOCILIZUMAB
     Indication: LUNG NEOPLASM MALIGNANT
  2. ACTEMRA [Suspect]
     Active Substance: TOCILIZUMAB
     Indication: TRACHEAL CANCER
     Route: 058
     Dates: start: 20140818

REACTIONS (3)
  - Burning sensation [Unknown]
  - Off label use [Unknown]
  - Pain [Unknown]

NARRATIVE: CASE EVENT DATE: 20150803
